FAERS Safety Report 9131904 (Version 2)
Quarter: 2013Q2

REPORT INFORMATION
  Report Type: Spontaneous
  Country: US (occurrence: US)
  Receive Date: 20130301
  Receipt Date: 20130408
  Transmission Date: 20140414
  Serious: Yes (Other)
  Sender: FDA-Public Use
  Company Number: PHEH2013US004829

PATIENT
  Sex: Female

DRUGS (4)
  1. TEGRETOL [Suspect]
  2. CARBAMAZEPINE [Suspect]
  3. SEROQUEL [Concomitant]
     Dosage: UNK UKN, UNK
  4. LUVOX [Concomitant]
     Dosage: UNK UKN, UNK

REACTIONS (1)
  - Convulsion [Unknown]
